FAERS Safety Report 10173107 (Version 1)
Quarter: 2014Q2

REPORT INFORMATION
  Report Type: Spontaneous
  Country: US (occurrence: None)
  Receive Date: 20140514
  Receipt Date: 20140514
  Transmission Date: 20141212
  Serious: No
  Sender: FDA-Public Use
  Company Number: None

PATIENT
  Age: 17 Year
  Sex: Female
  Weight: 118 kg

DRUGS (4)
  1. LINEZOLID [Suspect]
     Indication: CHRONIC SINUSITIS
     Route: 048
     Dates: start: 20140417, end: 20140509
  2. LINEZOLID [Suspect]
     Indication: STAPHYLOCOCCAL INFECTION
     Route: 048
     Dates: start: 20140417, end: 20140509
  3. VANCOMYCIN [Concomitant]
  4. LEVOFLOXACIN [Concomitant]

REACTIONS (2)
  - Tongue discolouration [None]
  - Tongue disorder [None]
